FAERS Safety Report 6651701-6 (Version None)
Quarter: 2010Q1

REPORT INFORMATION
  Report Type: 
  Country: None (occurrence: None)
  Receive Date: 20100325
  Receipt Date: 20100322
  Transmission Date: 20100710
  Serious: Yes (Death)
  Sender: FDA-Public Use
  Company Number: CA-CELGENEUS-028-C5013-10031997

PATIENT
  Sex: Male
  Weight: 95.5 kg

DRUGS (15)
  1. CC-5013 [Suspect]
     Indication: MULTIPLE MYELOMA
     Route: 048
     Dates: start: 20090409
  2. CC-5013 [Suspect]
     Route: 048
     Dates: start: 20100302, end: 20100319
  3. DEXAMETHASONE [Suspect]
     Indication: MULTIPLE MYELOMA
     Route: 065
     Dates: start: 20090409
  4. DEXAMETHASONE [Suspect]
     Route: 065
     Dates: start: 20100302, end: 20100319
  5. RAMIPRIL [Concomitant]
     Indication: HYPERTENSION
     Route: 048
     Dates: start: 19990101
  6. LASIX [Concomitant]
     Indication: HYPERTENSION
     Route: 048
     Dates: start: 20100123
  7. CARDOVAL [Concomitant]
     Indication: HYPERTENSION
     Route: 048
     Dates: start: 20090511
  8. ALLOPURINOL [Concomitant]
     Indication: GOUT
     Route: 048
     Dates: start: 19990101
  9. DIGOXIN [Concomitant]
     Indication: ATRIAL FIBRILLATION
     Route: 048
     Dates: start: 20090512
  10. RABEPRAZOLE SODIUM [Concomitant]
     Indication: PROPHYLAXIS
     Route: 048
     Dates: start: 20081001
  11. WARFARIN SODIUM [Concomitant]
     Indication: PROPHYLAXIS
     Dosage: 3-3.5MG
     Route: 048
     Dates: start: 20090515
  12. WARFARIN SODIUM [Concomitant]
  13. ARANESP [Concomitant]
     Route: 058
     Dates: start: 20100302
  14. RANITIDINE [Concomitant]
     Indication: PROPHYLAXIS
     Route: 065
     Dates: start: 20091023
  15. TYLENOL W/ CODEINE NO. 3 [Concomitant]
     Indication: TOOTH INFECTION
     Route: 065
     Dates: start: 20100211

REACTIONS (1)
  - DEATH [None]
